FAERS Safety Report 4824479-6 (Version None)
Quarter: 2005Q4

REPORT INFORMATION
  Report Type: 
  Country: None (occurrence: None)
  Receive Date: 20051108
  Receipt Date: 20051021
  Transmission Date: 20060501
  Serious: Yes (Hospitalization)
  Sender: FDA-Public Use
  Company Number: DE_050816754

PATIENT
  Age: 72 Year
  Sex: Female

DRUGS (4)
  1. ZYPREXA [Suspect]
     Indication: PSYCHOTIC DISORDER
     Dosage: 20 MG DAY
     Dates: start: 20050623, end: 20050814
  2. OXYBUTYNIN [Concomitant]
  3. VERAPAMIL [Concomitant]
  4. AMITRIPTYLINE HCL [Concomitant]

REACTIONS (11)
  - BRONCHOSPASM [None]
  - CARDIOVASCULAR DISORDER [None]
  - DEHYDRATION [None]
  - DRUG INTERACTION [None]
  - FAECALOMA [None]
  - ILEUS PARALYTIC [None]
  - IMPAIRED GASTRIC EMPTYING [None]
  - LIVER DISORDER [None]
  - PAIN [None]
  - PNEUMONIA ASPIRATION [None]
  - SEPSIS [None]
